FAERS Safety Report 22930344 (Version 3)
Quarter: 2023Q4

REPORT INFORMATION
  Report Type: Spontaneous
  Country: US (occurrence: US)
  Receive Date: 20230911
  Receipt Date: 20231018
  Transmission Date: 20240110
  Serious: No
  Sender: FDA-Public Use
  Company Number: US-ALNYLAM PHARMACEUTICALS, INC.-ALN-2023-004246

PATIENT

DRUGS (1)
  1. OXLUMO [Suspect]
     Active Substance: LUMASIRAN
     Indication: Primary hyperoxaluria
     Dosage: 258 MILLIGRAM, Q3M
     Route: 058

REACTIONS (6)
  - Injection site pain [Unknown]
  - Injection site discolouration [Unknown]
  - Injection site exfoliation [Unknown]
  - Ill-defined disorder [Unknown]
  - Unevaluable event [Unknown]
  - Injection site urticaria [Unknown]
